FAERS Safety Report 7879955-9 (Version None)
Quarter: 2011Q4

REPORT INFORMATION
  Report Type: 
  Country: None (occurrence: None)
  Receive Date: 20111101
  Receipt Date: 20111028
  Transmission Date: 20120403
  Serious: Yes (Hospitalization)
  Sender: FDA-Public Use
  Company Number: DE-ABBOTT-11P-062-0865987-00

PATIENT
  Sex: Female

DRUGS (3)
  1. CORTISONE ACETATE [Concomitant]
     Indication: RHEUMATOID ARTHRITIS
     Dosage: 20MG DAILY
     Dates: start: 20111007
  2. HUMIRA [Suspect]
     Indication: RHEUMATOID ARTHRITIS
     Route: 058
     Dates: start: 20110413, end: 20111007
  3. ARAVA [Concomitant]
     Indication: RHEUMATOID ARTHRITIS
     Route: 048

REACTIONS (2)
  - DRUG INEFFECTIVE [None]
  - SYNOVIAL CYST [None]
